FAERS Safety Report 9821376 (Version 1)
Quarter: 2013Q4

REPORT INFORMATION
  Report Type: Spontaneous
  Country: US (occurrence: None)
  Receive Date: 20131028
  Receipt Date: 20131028
  Transmission Date: 20140711
  Serious: Yes (Other)
  Sender: FDA-Public Use
  Company Number: 2013US001249

PATIENT
  Age: 46 Year
  Sex: Female

DRUGS (5)
  1. ICLUSIG [Suspect]
     Indication: CHRONIC MYELOID LEUKAEMIA
     Route: 048
     Dates: start: 20130219, end: 20130226
  2. NEXIUM I.V. [Concomitant]
  3. HYDROCHLOROTHIAZIDE (HYDROCHLOROTHIAZIDE) [Concomitant]
  4. AZELASTINE (AZELASTINE) NASAL DROP (NASAL SPRAY TOO) [Concomitant]
  5. DULERA (FORMOTEROL FUMARATE, MOMETASONE FUROATE) [Concomitant]

REACTIONS (14)
  - Dehydration [None]
  - Vision blurred [None]
  - Pain of skin [None]
  - Flushing [None]
  - Hepatic enzyme increased [None]
  - Pain [None]
  - Rash [None]
  - Dizziness [None]
  - Fatigue [None]
  - Arthralgia [None]
  - Headache [None]
  - Pyrexia [None]
  - Lipase increased [None]
  - Pancreatic enzymes increased [None]
